FAERS Safety Report 19122723 (Version 2)
Quarter: 2022Q1

REPORT INFORMATION
  Report Type: Report from Study
  Country: GB (occurrence: GB)
  Receive Date: 20210412
  Receipt Date: 20220228
  Transmission Date: 20220423
  Serious: Yes (Hospitalization, Other)
  Sender: FDA-Public Use
  Company Number: GB-ROCHE-1701436

PATIENT
  Age: 46 Year
  Sex: Female

DRUGS (72)
  1. DOCETAXEL [Suspect]
     Active Substance: DOCETAXEL
     Indication: Breast cancer metastatic
     Dosage: 150 MILLIGRAM, Q3W
     Route: 042
     Dates: start: 20150421, end: 20150421
  2. DOCETAXEL [Suspect]
     Active Substance: DOCETAXEL
     Dosage: 120 MILLIGRAM, Q3W
     Route: 042
     Dates: start: 20150512, end: 20150804
  3. DOCETAXEL [Suspect]
     Active Substance: DOCETAXEL
     Dosage: 120 MILLIGRAM, Q3W
     Route: 042
     Dates: start: 20150512, end: 20150512
  4. DOCETAXEL [Suspect]
     Active Substance: DOCETAXEL
     Dosage: 120 MILLIGRAM, Q3W
     Route: 042
     Dates: start: 20150804, end: 20150804
  5. TRASTUZUMAB [Suspect]
     Active Substance: TRASTUZUMAB
     Indication: Breast cancer metastatic
     Dosage: 600 MILLIGRAM, Q3W
     Route: 042
     Dates: start: 20150420
  6. TRASTUZUMAB [Suspect]
     Active Substance: TRASTUZUMAB
     Dosage: 500 MILLIGRAM, Q3W
     Route: 042
     Dates: start: 20171227
  7. PERTUZUMAB [Suspect]
     Active Substance: PERTUZUMAB
     Indication: Breast cancer metastatic
     Dosage: 420 MILLIGRAM, Q3W
     Route: 042
     Dates: start: 20150420
  8. PERTUZUMAB [Suspect]
     Active Substance: PERTUZUMAB
     Indication: HER2 positive breast cancer
     Dosage: 840 MILLIGRAM, Q3W
     Route: 042
     Dates: start: 20150420
  9. ACYCLOVIR [Concomitant]
     Active Substance: ACYCLOVIR
     Indication: Genital herpes
     Dosage: 200 MILLIGRAM, QID (0.25 DAY)
     Route: 048
     Dates: start: 20170211, end: 20170218
  10. ACYCLOVIR [Concomitant]
     Active Substance: ACYCLOVIR
     Dosage: 400 MILLIGRAM, Q6H (400 MG, QID)
     Route: 048
     Dates: start: 20170211, end: 20170218
  11. CALCIUM CARBONATE\CHOLECALCIFEROL [Concomitant]
     Active Substance: CALCIUM CARBONATE\CHOLECALCIFEROL
     Dosage: 1 DOSAGE FORM, BID (0.5 DAY)
     Route: 048
     Dates: start: 20150623, end: 20150625
  12. AMOXIL [Concomitant]
     Active Substance: AMOXICILLIN
     Indication: Lower respiratory tract infection
     Dosage: 500 MILLIGRAM, QD
     Route: 048
     Dates: start: 20171227, end: 20180102
  13. AMOXIL [Concomitant]
     Active Substance: AMOXICILLIN
     Dosage: 625 MILLIGRAM, QD (625 MG, QD)
     Route: 048
     Dates: start: 20180220, end: 20180225
  14. AMOXIL [Concomitant]
     Active Substance: AMOXICILLIN
     Dosage: 1875 MILLIGRAM, QD (1875MG, QD)
     Route: 048
     Dates: start: 20180225
  15. Aqueous [Concomitant]
     Indication: Eczema
     Dosage: UNK
     Route: 061
     Dates: start: 20181112
  16. AVEENO [Concomitant]
     Active Substance: DIMETHICONE\HOMOSALATE\OCTINOXATE\OCTISALATE\TITANIUM DIOXIDE
     Indication: Eczema
     Dosage: UNK
     Route: 061
     Dates: start: 20190114
  17. IBUPROFEN [Concomitant]
     Active Substance: IBUPROFEN
     Indication: Arthralgia
     Dosage: 200 MILLIGRAM, BID
     Route: 048
     Dates: start: 20150420, end: 20150426
  18. IBUPROFEN [Concomitant]
     Active Substance: IBUPROFEN
     Dosage: 400 MILLIGRAM
     Route: 048
     Dates: start: 20161229
  19. CALCEOS [Concomitant]
     Active Substance: CALCIUM CARBONATE\CHOLECALCIFEROL
     Indication: Product used for unknown indication
     Dosage: 1 DOSAGE FORM, QD
     Route: 048
     Dates: start: 20150713, end: 20150824
  20. AMOXICILLIN\CLAVULANATE POTASSIUM [Concomitant]
     Active Substance: AMOXICILLIN\CLAVULANATE POTASSIUM
     Indication: Influenza
     Dosage: 625 MILLIGRAM, TID
     Route: 048
     Dates: start: 20180220, end: 20180225
  21. AMOXICILLIN\CLAVULANATE POTASSIUM [Concomitant]
     Active Substance: AMOXICILLIN\CLAVULANATE POTASSIUM
     Dosage: 625 MILLIGRAM, Q3D (625 MG, Q3D)
     Route: 048
     Dates: start: 20180220, end: 20180225
  22. AMOXICILLIN\CLAVULANATE POTASSIUM [Concomitant]
     Active Substance: AMOXICILLIN\CLAVULANATE POTASSIUM
     Dosage: 625 MILLIGRAM, TID
     Route: 048
     Dates: start: 20210220, end: 20210225
  23. CODEINE [Concomitant]
     Active Substance: CODEINE
     Indication: Arthralgia
     Dosage: 30 MILLIGRAM (30 MG, PRN; AS NECESSARY)
     Route: 048
     Dates: start: 20151221, end: 20160425
  24. CODEINE PHOSPHATE [Concomitant]
     Active Substance: CODEINE PHOSPHATE
     Indication: Arthralgia
     Dosage: 30 MILLIGRAM
     Route: 048
     Dates: start: 20160816
  25. XGEVA [Concomitant]
     Active Substance: DENOSUMAB
     Dosage: 120 MILLIGRAM, BID
     Route: 048
     Dates: start: 20180115
  26. XGEVA [Concomitant]
     Active Substance: DENOSUMAB
     Dosage: 120 MILLIGRAM, BID
     Route: 048
  27. XGEVA [Concomitant]
     Active Substance: DENOSUMAB
     Dosage: 120 MILLIGRAM, MONTHLY
     Route: 058
     Dates: start: 20150623, end: 20170508
  28. DOMPERIDONE [Concomitant]
     Active Substance: DOMPERIDONE
     Indication: Nausea
     Dosage: 10 MILLIGRAM, TID
     Route: 048
     Dates: start: 20150420, end: 20150427
  29. DOMPERIDONE [Concomitant]
     Active Substance: DOMPERIDONE
     Dosage: 10 MILLIGRAM, Q3D
     Route: 048
     Dates: start: 20150420, end: 20150427
  30. ENOXAPARIN [Concomitant]
     Active Substance: ENOXAPARIN
     Indication: Influenza
     Dosage: 40 MILLIGRAM, QD
     Route: 058
     Dates: start: 20180219, end: 20180220
  31. ENOXAPARIN [Concomitant]
     Active Substance: ENOXAPARIN
     Dosage: 40 MILLIGRAM, QD
     Route: 058
     Dates: start: 20180220
  32. HYDROCORTISONE [Concomitant]
     Active Substance: HYDROCORTISONE
     Indication: Eczema
     Dosage: 1 GTT DROPS (1 PERCENT CREAM)
     Route: 061
  33. HYDROCORTISONE [Concomitant]
     Active Substance: HYDROCORTISONE
     Dosage: UNK, PRN; AS NECESSARY
     Route: 061
  34. IBUPROFEN [Concomitant]
     Active Substance: IBUPROFEN
     Indication: Spinal pain
     Dosage: 400 MILLIGRAM
     Route: 048
     Dates: start: 20161229
  35. POLYETHYLENE GLYCOL 3350\POTASSIUM CHLORIDE\SODIUM BICARBONATE\SODIUM [Concomitant]
     Active Substance: POLYETHYLENE GLYCOL 3350\POTASSIUM CHLORIDE\SODIUM BICARBONATE\SODIUM CHLORIDE
     Indication: Influenza
     Dosage: 1 DOSAGE FORM, BID (1 SACHET)
     Route: 048
     Dates: start: 20180219, end: 20180220
  36. LOPERAMIDE [Concomitant]
     Active Substance: LOPERAMIDE
     Indication: Diarrhoea
     Dosage: 2 MILLIGRAM, QD/PRN (AS NEEDED)
     Route: 048
     Dates: start: 20150516, end: 20150516
  37. MEGACE [Concomitant]
     Active Substance: MEGESTROL ACETATE
     Indication: Menopausal symptoms
     Dosage: 80 MILLIGRAM, QD
     Route: 048
     Dates: start: 20150601
  38. MEGACE [Concomitant]
     Active Substance: MEGESTROL ACETATE
     Dosage: 80 MILLIGRAM
     Route: 048
  39. MEGACE [Concomitant]
     Active Substance: MEGESTROL ACETATE
     Dosage: 80 MG, QOD
     Route: 048
     Dates: start: 20150601
  40. NAPROXEN [Concomitant]
     Active Substance: NAPROXEN
     Indication: Arthralgia
     Dosage: 250 MILLIGRAM
     Route: 048
     Dates: start: 2015, end: 20160314
  41. NAPROXEN [Concomitant]
     Active Substance: NAPROXEN
     Indication: Influenza
     Dosage: 500 MILLIGRAM, BID
     Route: 048
     Dates: start: 20180218, end: 20180220
  42. NAPROXEN [Concomitant]
     Active Substance: NAPROXEN
     Dosage: 500 MILLIGRAM
     Route: 048
     Dates: start: 2015, end: 20160314
  43. OMEPRAZOLE [Concomitant]
     Active Substance: OMEPRAZOLE
     Indication: Gastritis
     Dosage: 20 MILLIGRAM, QD
     Route: 048
     Dates: start: 20150622, end: 20150713
  44. OMEPRAZOLE [Concomitant]
     Active Substance: OMEPRAZOLE
     Dosage: 20 MILLIGRAM
     Route: 048
  45. ACETAMINOPHEN [Concomitant]
     Active Substance: ACETAMINOPHEN
     Indication: Arthralgia
     Dosage: 1 GRAM, QID
     Route: 048
     Dates: start: 20150427, end: 20150505
  46. ACETAMINOPHEN [Concomitant]
     Active Substance: ACETAMINOPHEN
     Indication: Influenza
     Dosage: 1 GRAM, QID
     Route: 048
     Dates: start: 20180218, end: 20180220
  47. ACETAMINOPHEN [Concomitant]
     Active Substance: ACETAMINOPHEN
     Dosage: 1 GRAM
     Route: 048
     Dates: start: 20150420, end: 20180217
  48. ACETAMINOPHEN [Concomitant]
     Active Substance: ACETAMINOPHEN
     Dosage: 1 GRAM, Q4D
     Route: 048
     Dates: start: 20180220
  49. ACETAMINOPHEN [Concomitant]
     Active Substance: ACETAMINOPHEN
     Dosage: 1 GRAM, Q4D
     Route: 048
     Dates: start: 20150427, end: 20150505
  50. RANITIDINE [Concomitant]
     Active Substance: RANITIDINE
     Indication: Gastrooesophageal reflux disease
     Dosage: 150 MILLIGRAM, BID
     Route: 048
     Dates: start: 20150421
  51. RANITIDINE [Concomitant]
     Active Substance: RANITIDINE
     Dosage: 150 MILLIGRAM, QD
     Route: 048
     Dates: start: 20150421
  52. SENNA [Concomitant]
     Active Substance: SENNA LEAF\SENNOSIDES\SENNOSIDES A AND B
     Indication: Influenza
     Dosage: 1 DOSAGE FORM, QD (1 SACHET)
     Route: 048
     Dates: start: 20180219, end: 20180220
  53. SENNA [Concomitant]
     Active Substance: SENNA LEAF\SENNOSIDES\SENNOSIDES A AND B
     Dosage: UNK UNK, QD
     Route: 048
     Dates: start: 20180219, end: 20180220
  54. SENNA [Concomitant]
     Active Substance: SENNA LEAF\SENNOSIDES\SENNOSIDES A AND B
     Dosage: 1 DOSAGE FORM (1 SACHET)
     Route: 048
     Dates: start: 20180219, end: 20180220
  55. TAMIFLU [Concomitant]
     Active Substance: OSELTAMIVIR PHOSPHATE
     Indication: Influenza
     Dosage: 75 MILLIGRAM, BID
     Route: 048
     Dates: start: 20180219, end: 20180226
  56. TAMIFLU [Concomitant]
     Active Substance: OSELTAMIVIR PHOSPHATE
     Dosage: 150 MILLIGRAM, QD
     Route: 048
     Dates: start: 20180226
  57. TAMIFLU [Concomitant]
     Active Substance: OSELTAMIVIR PHOSPHATE
     Dosage: 75 MILLIGRAM, QD
     Route: 048
     Dates: start: 20180219, end: 20180226
  58. PIPERACILLIN SODIUM\TAZOBACTAM SODIUM [Concomitant]
     Active Substance: PIPERACILLIN SODIUM\TAZOBACTAM SODIUM
     Indication: Influenza
     Dosage: 4.5 MILLIGRAM, TID
     Route: 042
     Dates: start: 20150429
  59. PIPERACILLIN SODIUM\TAZOBACTAM SODIUM [Concomitant]
     Active Substance: PIPERACILLIN SODIUM\TAZOBACTAM SODIUM
     Indication: Neutropenic sepsis
     Dosage: 4.5 MILLIGRAM, TID
     Route: 042
     Dates: start: 20180218, end: 20180220
  60. PIPERACILLIN SODIUM\TAZOBACTAM SODIUM [Concomitant]
     Active Substance: PIPERACILLIN SODIUM\TAZOBACTAM SODIUM
     Dosage: 4.5 G, QD (4.5 GRAM, QD (0.33 DAY))
     Route: 042
     Dates: start: 20180220
  61. PIPERACILLIN SODIUM\TAZOBACTAM SODIUM [Concomitant]
     Active Substance: PIPERACILLIN SODIUM\TAZOBACTAM SODIUM
     Dosage: 13.4 GRAM, QD
     Route: 042
     Dates: start: 20150429
  62. PIPERACILLIN SODIUM\TAZOBACTAM SODIUM [Concomitant]
     Active Substance: PIPERACILLIN SODIUM\TAZOBACTAM SODIUM
     Dosage: 4.5 GRAM, TID
     Route: 042
     Dates: start: 20150429
  63. PIPERACILLIN SODIUM\TAZOBACTAM SODIUM [Concomitant]
     Active Substance: PIPERACILLIN SODIUM\TAZOBACTAM SODIUM
     Dosage: 4.5 GRAM, TID
     Route: 042
     Dates: start: 20180218, end: 20180220
  64. VASELINE PURE [Concomitant]
     Active Substance: PETROLATUM
     Indication: Epistaxis
     Dosage: 1 TBSP (TABLESPOON)
     Route: 061
     Dates: start: 20160816
  65. ZOPICLONE [Concomitant]
     Active Substance: ZOPICLONE
     Indication: Sleep disorder
     Dosage: 3.75 MG, QD (3.75 MILLIGRAM, AT NIGHT)
     Route: 048
     Dates: start: 20151019
  66. LANOLIN\LIGHT MINERAL OIL\PARAFFIN [Concomitant]
     Active Substance: LANOLIN\LIGHT MINERAL OIL\PARAFFIN
     Indication: Pruritus
     Dosage: PRN (1 TABLESPOON); AS NECESSARY
     Route: 061
     Dates: start: 20150515
  67. Covid-19 vaccine [Concomitant]
     Dosage: 30 MICROGRAM, QD
     Route: 030
     Dates: start: 20210422, end: 20210422
  68. Covid-19 vaccine [Concomitant]
     Dosage: 30 MICROGRAM, QD
     Route: 030
     Dates: start: 20210204, end: 20210204
  69. CLAVULANATE POTASSIUM [Concomitant]
     Active Substance: CLAVULANATE POTASSIUM
     Dosage: 1875 MILLIGRAM, QD
     Route: 048
     Dates: start: 20180225
  70. GAVISCON [Concomitant]
     Active Substance: ALUMINUM HYDROXIDE\MAGNESIUM CARBONATE
     Indication: Gastrooesophageal reflux disease
     Dosage: 20 MILLILITER (20 ML, PRN; AS NECESSARY)
     Dates: start: 201505
  71. HYDROCORTISONE [Concomitant]
     Active Substance: HYDROCORTISONE
     Indication: Spinal pain
     Dosage: 400 MILLIGRAM
     Route: 048
     Dates: start: 20161229
  72. METHYL SALICYLATE [Concomitant]
     Active Substance: METHYL SALICYLATE
     Indication: Product used for unknown indication
     Dosage: UNK UNK, PRN; AS NECESSARY
     Dates: start: 20161229

REACTIONS (25)
  - Ovarian cyst [Recovered/Resolved]
  - Abdominal pain [Recovered/Resolved]
  - Gastritis [Recovered/Resolved]
  - Mood swings [Recovered/Resolved]
  - Gastrooesophageal reflux disease [Recovered/Resolved]
  - Sleep disorder [Unknown]
  - Night sweats [Not Recovered/Not Resolved]
  - Glossodynia [Unknown]
  - Eczema [Recovered/Resolved]
  - Dry eye [Recovered/Resolved]
  - Neutropenic sepsis [Recovered/Resolved]
  - Hypoaesthesia oral [Recovered/Resolved]
  - Constipation [Unknown]
  - Epistaxis [Not Recovered/Not Resolved]
  - Arthralgia [Not Recovered/Not Resolved]
  - Lethargy [Not Recovered/Not Resolved]
  - Dysgeusia [Not Recovered/Not Resolved]
  - Headache [Recovered/Resolved]
  - Decreased appetite [Recovered/Resolved]
  - Nausea [Recovered/Resolved]
  - Pruritus [Recovered/Resolved]
  - Diarrhoea [Recovered/Resolved]
  - Dry skin [Not Recovered/Not Resolved]
  - Rash [Recovered/Resolved]
  - Off label use [Unknown]

NARRATIVE: CASE EVENT DATE: 20150420
